FAERS Safety Report 9181095 (Version 2)
Quarter: 2013Q3

REPORT INFORMATION
  Report Type: Spontaneous
  Country: US (occurrence: None)
  Receive Date: 20130320
  Receipt Date: 20130815
  Transmission Date: 20140515
  Serious: Yes (Other)
  Sender: FDA-Public Use
  Company Number: ADR-2012-01134

PATIENT
  Age: 44 Year
  Sex: Female

DRUGS (1)
  1. LIORESAL [Suspect]
     Indication: PAIN

REACTIONS (19)
  - Implant site extravasation [None]
  - Hypersomnia [None]
  - Fall [None]
  - Visual field defect [None]
  - Night sweats [None]
  - Heart rate decreased [None]
  - Hyperaesthesia [None]
  - Pain [None]
  - Device breakage [None]
  - Suture rupture [None]
  - Device occlusion [None]
  - Procedural pain [None]
  - Implant site bruising [None]
  - Device malfunction [None]
  - Muscle spasms [None]
  - Headache [None]
  - Incorrect route of drug administration [None]
  - Insomnia [None]
  - Hyperaesthesia [None]
